FAERS Safety Report 5710498-4 (Version None)
Quarter: 2008Q2

REPORT INFORMATION
  Report Type: 
  Country: None (occurrence: None)
  Receive Date: 20080414
  Receipt Date: 20080407
  Transmission Date: 20081010
  Serious: Yes (Hospitalization)
  Sender: FDA-Public Use
  Company Number: 2008SP006556

PATIENT
  Age: 53 Year
  Sex: Male

DRUGS (1)
  1. DESLORATADINE [Suspect]
     Indication: RHINITIS ALLERGIC
     Dosage: 5 MG;QD;PO
     Route: 048
     Dates: start: 20080402, end: 20080404

REACTIONS (1)
  - PANCREATITIS ACUTE [None]
